FAERS Safety Report 4968102-9 (Version None)
Quarter: 2006Q2

REPORT INFORMATION
  Report Type: 
  Country: None (occurrence: None)
  Receive Date: 20060405
  Receipt Date: 20060324
  Transmission Date: 20061013
  Serious: Yes (Hospitalization, Other)
  Sender: FDA-Public Use
  Company Number: HQWYE517424MAR06

PATIENT
  Age: 21 Year
  Sex: Female

DRUGS (4)
  1. ADVIL [Suspect]
     Indication: PHARYNGITIS STREPTOCOCCAL
     Dosage: 200 MG 2X PER 1 DAY
     Route: 048
     Dates: start: 20060206, end: 20060209
  2. AMOXICILLIN TRIHYDRATE [Suspect]
     Indication: PHARYNGITIS STREPTOCOCCAL
     Dosage: 1 G 1X PER 1 DAY
     Route: 048
     Dates: start: 20060206, end: 20060212
  3. ISOTRETINOIN [Suspect]
     Indication: ACNE
     Dosage: 30 MG 1X PER 1 DAY
     Route: 048
     Dates: start: 20050901, end: 20060212
  4. HORMONAL CONTRACEPTIVES FOR SYSTEMIC USE [Concomitant]

REACTIONS (7)
  - ABDOMINAL PAIN [None]
  - COLITIS ULCERATIVE [None]
  - CULTURE THROAT POSITIVE [None]
  - DRUG TOXICITY [None]
  - ENTEROCOLITIS HAEMORRHAGIC [None]
  - RECTAL HAEMORRHAGE [None]
  - STREPTOCOCCAL INFECTION [None]
